FAERS Safety Report 6756120-X (Version None)
Quarter: 2010Q2

REPORT INFORMATION
  Report Type: 
  Country: None (occurrence: None)
  Receive Date: 20100603
  Receipt Date: 20100603
  Transmission Date: 20101027
  Serious: No
  Sender: FDA-Public Use
  Company Number: None

PATIENT
  Age: 68 Year
  Sex: Male
  Weight: 108.59 kg

DRUGS (1)
  1. WARFARIN [Suspect]
     Dates: start: 20090101

REACTIONS (2)
  - HAEMORRHAGE [None]
  - MUSCLE HAEMORRHAGE [None]
